FAERS Safety Report 5320272-9 (Version None)
Quarter: 2007Q2

REPORT INFORMATION
  Report Type: 
  Country: None (occurrence: None)
  Receive Date: 20070502
  Receipt Date: 20070425
  Transmission Date: 20071010
  Serious: Yes (Death)
  Sender: FDA-Public Use
  Company Number: 233289K07USA

PATIENT
  Age: 72 Year
  Sex: Female

DRUGS (2)
  1. REBIF [Suspect]
     Indication: MULTIPLE SCLEROSIS
     Dosage: 44 MCG, 3 IN 1 WEEKS, SUBCUTANEOUS
     Route: 058
     Dates: start: 20041025, end: 20060531
  2. HEART MEDICATIONS (CARDIAC THERAPY) [Concomitant]

REACTIONS (2)
  - CORONARY ARTERY DISEASE [None]
  - SUDDEN DEATH [None]
